FAERS Safety Report 7512501-8 (Version None)
Quarter: 2011Q2

REPORT INFORMATION
  Report Type: 
  Country: None (occurrence: None)
  Receive Date: 20110531
  Receipt Date: 20110518
  Transmission Date: 20111010
  Serious: Yes (Hospitalization)
  Sender: FDA-Public Use
  Company Number: DE-ROCHE-778123

PATIENT
  Sex: Female
  Weight: 83 kg

DRUGS (4)
  1. BEVACIZUMAB [Suspect]
     Dosage: LAST DOSE PRIOR TO SAE: 4 MAY 2011
     Route: 042
     Dates: start: 20110126
  2. OXALIPLATIN [Suspect]
     Dosage: LAST DOSE PRIOR TO SAE: 4 MAY 2011
     Route: 042
     Dates: start: 20110126
  3. FLUOROURACIL [Suspect]
     Dosage: 5800 MG PER 48 HOURS; EVERY 14 DAYS.
     Route: 042
  4. LEUCOVORIN CALCIUM [Suspect]
     Route: 042

REACTIONS (1)
  - INTESTINAL OBSTRUCTION [None]
